FAERS Safety Report 6838449-X (Version None)
Quarter: 2010Q3

REPORT INFORMATION
  Report Type: 
  Country: None (occurrence: None)
  Receive Date: 20100713
  Receipt Date: 20070611
  Transmission Date: 20110219
  Serious: No
  Sender: FDA-Public Use
  Company Number: US-PFIZER INC-2007049171

PATIENT
  Sex: Female
  Weight: 90.9 kg

DRUGS (5)
  1. CHANTIX [Suspect]
     Indication: SMOKING CESSATION THERAPY
     Route: 048
     Dates: start: 20070601
  2. CRESTOR [Suspect]
     Indication: BLOOD CHOLESTEROL
  3. ACETYLSALICYLIC ACID [Concomitant]
  4. LUMIGAN [Concomitant]
  5. ATENOLOL [Concomitant]
     Indication: BLOOD PRESSURE FLUCTUATION

REACTIONS (4)
  - HEADACHE [None]
  - NAUSEA [None]
  - PAIN IN EXTREMITY [None]
  - WHITE BLOOD CELL COUNT INCREASED [None]
